FAERS Safety Report 23531251 (Version 2)
Quarter: 2024Q1

REPORT INFORMATION
  Report Type: Spontaneous
  Country: JP (occurrence: JP)
  Receive Date: 20240216
  Receipt Date: 20240329
  Transmission Date: 20240410
  Serious: No
  Sender: FDA-Public Use
  Company Number: JP-PFIZER INC-PV202400014335

PATIENT

DRUGS (1)
  1. NGENLA [Suspect]
     Active Substance: SOMATROGON-GHLA
     Dosage: 14 MG, WEEKLY
     Route: 058

REACTIONS (3)
  - Device use error [Unknown]
  - Skin abrasion [Unknown]
  - Injection site pain [Unknown]
